FAERS Safety Report 8621739-8 (Version None)
Quarter: 2012Q3

REPORT INFORMATION
  Report Type: 
  Country: None (occurrence: None)
  Receive Date: 20120821
  Receipt Date: 20120821
  Transmission Date: 20120928
  Serious: Yes (Other)
  Sender: FDA-Public Use
  Company Number: None

PATIENT
  Age: 67 Year
  Sex: Male
  Weight: 94.7 kg

DRUGS (2)
  1. SORAFENIB [Suspect]
     Indication: METASTASES TO CENTRAL NERVOUS SYSTEM
     Dosage: 200 MG, BID, PO
     Route: 048
     Dates: start: 20120716
  2. SORAFENIB [Suspect]
     Indication: LUNG CANCER METASTATIC
     Dosage: 200 MG, BID, PO
     Route: 048
     Dates: start: 20120716

REACTIONS (2)
  - INCORRECT DOSE ADMINISTERED [None]
  - DEHYDRATION [None]
